FAERS Safety Report 21360083 (Version 1)
Quarter: 2022Q3

REPORT INFORMATION
  Report Type: Spontaneous
  Country: US (occurrence: None)
  Receive Date: 20220920
  Receipt Date: 20220920
  Transmission Date: 20221027
  Serious: No
  Sender: FDA-Public Use
  Company Number: None

PATIENT
  Age: 77 Year
  Sex: Female

DRUGS (1)
  1. PROLIA [Suspect]
     Active Substance: DENOSUMAB
     Indication: Osteoporosis
     Dosage: 60MG : EVERY 6 MONTHS UNDER THE SKIN?
     Route: 058
     Dates: start: 202009

REACTIONS (2)
  - Device delivery system issue [None]
  - Product dose omission issue [None]

NARRATIVE: CASE EVENT DATE: 20220913
